FAERS Safety Report 20902224 (Version 1)
Quarter: 2022Q2

REPORT INFORMATION
  Report Type: Report from Study
  Country: US (occurrence: US)
  Receive Date: 20220601
  Receipt Date: 20220601
  Transmission Date: 20220720
  Serious: Yes (Hospitalization)
  Sender: FDA-Public Use
  Company Number: US-TAKEDA-2022TUS011996

PATIENT
  Age: 17 Year
  Sex: Male
  Weight: 54 kg

DRUGS (14)
  1. HUMAN IMMUNOGLOBULIN G [Suspect]
     Active Substance: HUMAN IMMUNOGLOBULIN G
     Indication: Glomerulonephritis membranous
     Dosage: 8 GRAM, 1/WEEK
     Route: 058
     Dates: start: 20210318
  2. HUMAN IMMUNOGLOBULIN G [Suspect]
     Active Substance: HUMAN IMMUNOGLOBULIN G
     Indication: Immunodeficiency common variable
  3. AZITHROMYCIN [Concomitant]
     Active Substance: AZITHROMYCIN
  4. TUMS [Concomitant]
     Active Substance: CALCIUM CARBONATE
  5. BUMETANIDE [Concomitant]
     Active Substance: BUMETANIDE
  6. SYMBICORT [Concomitant]
     Active Substance: BUDESONIDE\FORMOTEROL FUMARATE DIHYDRATE
  7. SODIUM BICARBONATE [Concomitant]
     Active Substance: SODIUM BICARBONATE
  8. VITAMIN D [Concomitant]
     Active Substance: VITAMIN D NOS
  9. ARANESP [Concomitant]
     Active Substance: DARBEPOETIN ALFA
  10. LISINOPRIL [Concomitant]
     Active Substance: LISINOPRIL
  11. DIPHENHYDRAMINE [Concomitant]
     Active Substance: DIPHENHYDRAMINE
     Route: 065
  12. EPINEPHRINE [Concomitant]
     Active Substance: EPINEPHRINE
     Route: 065
  13. ACETAMINOPHEN [Concomitant]
     Active Substance: ACETAMINOPHEN
     Route: 065
  14. Lmx [Concomitant]
     Route: 065

REACTIONS (3)
  - Ear disorder [Unknown]
  - COVID-19 [Unknown]
  - Product dose omission issue [Unknown]

NARRATIVE: CASE EVENT DATE: 20220119
